FAERS Safety Report 5113963-6 (Version None)
Quarter: 2006Q3

REPORT INFORMATION
  Report Type: 
  Country: None (occurrence: None)
  Receive Date: 20060921
  Receipt Date: 20060912
  Transmission Date: 20061208
  Serious: Yes (Hospitalization)
  Sender: FDA-Public Use
  Company Number: 2006BI001189

PATIENT
  Age: 52 Year
  Sex: Female
  Weight: 63.05 kg

DRUGS (1)
  1. AVONEX [Suspect]
     Indication: MULTIPLE SCLEROSIS
     Dosage: 30 UG;QW;IM
     Route: 030
     Dates: start: 20040211

REACTIONS (3)
  - IMPAIRED HEALING [None]
  - JOINT DISLOCATION [None]
  - ROAD TRAFFIC ACCIDENT [None]
